FAERS Safety Report 25184203 (Version 3)
Quarter: 2025Q3

REPORT INFORMATION
  Report Type: Spontaneous
  Country: CA (occurrence: CA)
  Receive Date: 20250410
  Receipt Date: 20250809
  Transmission Date: 20251021
  Serious: Yes (Other)
  Sender: ALEXION PHARMACEUTICALS
  Company Number: CA-AstraZeneca-CH-00842183A

PATIENT
  Sex: Female

DRUGS (1)
  1. PULMICORT TURBUHALER [Suspect]
     Active Substance: BUDESONIDE

REACTIONS (10)
  - Drug dependence [Unknown]
  - Sinusitis [Unknown]
  - Oropharyngeal pain [Unknown]
  - Pneumonia [Unknown]
  - Cough [Unknown]
  - Drug ineffective [Unknown]
  - Sinus headache [Unknown]
  - Illness [Unknown]
  - Sinonasal obstruction [Unknown]
  - Rhinorrhoea [Unknown]
